FAERS Safety Report 6005777-X (Version None)
Quarter: 2008Q4

REPORT INFORMATION
  Report Type: 
  Country: None (occurrence: None)
  Receive Date: 20081217
  Receipt Date: 20081205
  Transmission Date: 20090506
  Serious: Yes (Other)
  Sender: FDA-Public Use
  Company Number: US-WYE-H07110308

PATIENT
  Sex: Female

DRUGS (2)
  1. PRISTIQ [Suspect]
     Indication: DEPRESSION
     Route: 048
     Dates: start: 20080901, end: 20081120
  2. PRISTIQ [Suspect]
     Route: 048
     Dates: start: 20081121

REACTIONS (2)
  - DYSPNOEA [None]
  - URTICARIA [None]
